FAERS Safety Report 4749843-5 (Version None)
Quarter: 2005Q3

REPORT INFORMATION
  Report Type: 
  Country: None (occurrence: None)
  Receive Date: 20050822
  Receipt Date: 20050815
  Transmission Date: 20060218
  Serious: Yes (Hospitalization)
  Sender: FDA-Public Use
  Company Number: 2005UW12194

PATIENT
  Age: 22648 Day
  Sex: Male

DRUGS (2)
  1. IRESSA [Suspect]
     Indication: PROSTATE CANCER
     Route: 048
     Dates: start: 20050708
  2. RAD 001 [Suspect]
     Indication: PROSTATE CANCER
     Route: 048
     Dates: start: 20050708

REACTIONS (4)
  - DISSEMINATED INTRAVASCULAR COAGULATION [None]
  - HAEMOGLOBIN DECREASED [None]
  - THROMBOCYTOPENIA [None]
  - WHITE BLOOD CELLS URINE POSITIVE [None]
